FAERS Safety Report 10207651 (Version 1)
Quarter: 2014Q2

REPORT INFORMATION
  Report Type: Spontaneous
  Country: US (occurrence: None)
  Receive Date: 20140527
  Receipt Date: 20140527
  Transmission Date: 20141212
  Serious: Yes (Hospitalization, Other)
  Sender: FDA-Public Use
  Company Number: None

PATIENT
  Age: 49 Year
  Sex: Female

DRUGS (5)
  1. AMOXICILLIN/CLAVULANATE [Suspect]
     Indication: BRONCHITIS
     Dates: start: 201301, end: 201301
  2. ATENOLOL [Concomitant]
  3. PRILOSEC [Concomitant]
  4. ROPINIROLE [Concomitant]
  5. TRIAZOLAM [Concomitant]

REACTIONS (9)
  - Drug-induced liver injury [None]
  - Liver transplant [None]
  - Encephalopathy [None]
  - Ascites [None]
  - Cholestasis [None]
  - Renal failure acute [None]
  - Hepatorenal syndrome [None]
  - Hyperbilirubinaemia [None]
  - Post procedural complication [None]
